FAERS Safety Report 16463875 (Version 1)
Quarter: 2019Q2

REPORT INFORMATION
  Report Type: Spontaneous
  Country: US (occurrence: US)
  Receive Date: 20190621
  Receipt Date: 20190621
  Transmission Date: 20190711
  Serious: Yes (Hospitalization, Other)
  Sender: FDA-Public Use
  Company Number: US-SA-2019SA166893

PATIENT
  Sex: Male

DRUGS (1)
  1. LUMIZYME [Suspect]
     Active Substance: ALGLUCOSIDASE ALFA
     Indication: GLYCOGEN STORAGE DISEASE TYPE II
     Dosage: 1600 MG, QOW
     Route: 042
     Dates: start: 20181108

REACTIONS (3)
  - Dysphagia [Recovering/Resolving]
  - Speech disorder [Recovering/Resolving]
  - Cerebrovascular accident [Recovering/Resolving]
